FAERS Safety Report 6724311-X (Version None)
Quarter: 2010Q2

REPORT INFORMATION
  Report Type: 
  Country: None (occurrence: None)
  Receive Date: 20100513
  Receipt Date: 20100510
  Transmission Date: 20101027
  Serious: Yes (Death)
  Sender: FDA-Public Use
  Company Number: US-GILEAD-2010-0029016

PATIENT
  Sex: Female

DRUGS (13)
  1. LETAIRIS [Suspect]
     Indication: PULMONARY ARTERIAL HYPERTENSION
     Route: 048
     Dates: start: 20080306
  2. REVATIO [Concomitant]
  3. REMODULIN [Concomitant]
  4. WARFARIN SODIUM [Concomitant]
  5. ALDACTONE [Concomitant]
  6. BUMETANIDE [Concomitant]
  7. METOPROLOL TARTRATE [Concomitant]
  8. PAXIL [Concomitant]
  9. PRILOSEC [Concomitant]
  10. BENTYL [Concomitant]
  11. LEVOXYL [Concomitant]
  12. KLOR-CON [Concomitant]
  13. LACTOSE [Concomitant]

REACTIONS (1)
  - PULMONARY ARTERIAL HYPERTENSION [None]
